FAERS Safety Report 13876488 (Version 1)
Quarter: 2017Q3

REPORT INFORMATION
  Report Type: Spontaneous
  Country: US (occurrence: None)
  Receive Date: 20170814
  Receipt Date: 20170814
  Transmission Date: 20171127
  Serious: No
  Sender: FDA-Public Use
  Company Number: None

PATIENT
  Age: 61 Year
  Sex: Female

DRUGS (1)
  1. PROLIA [Suspect]
     Active Substance: DENOSUMAB
     Indication: MALAISE
     Dosage: FREQUENCY - EVERY 6 MONTHS
     Route: 058
     Dates: start: 20170215, end: 20170315

REACTIONS (2)
  - Arthralgia [None]
  - Groin pain [None]

NARRATIVE: CASE EVENT DATE: 20170228
